FAERS Safety Report 13574949 (Version 3)
Quarter: 2017Q3

REPORT INFORMATION
  Report Type: Report from Study
  Country: US (occurrence: US)
  Receive Date: 20170523
  Receipt Date: 20170711
  Transmission Date: 20171127
  Serious: Yes (Hospitalization)
  Sender: FDA-Public Use
  Company Number: US-EXELIXIS-CABO-17009197

PATIENT
  Age: 58 Year
  Sex: Male

DRUGS (13)
  1. LIPITOR [Concomitant]
     Active Substance: ATORVASTATIN CALCIUM
  2. OXYCODONE [Concomitant]
     Active Substance: OXYCODONE
  3. LIDODERM [Concomitant]
     Active Substance: LIDOCAINE
  4. FENTANYL. [Concomitant]
     Active Substance: FENTANYL
  5. FLUCONAZOLE. [Concomitant]
     Active Substance: FLUCONAZOLE
  6. LACTULOSE. [Concomitant]
     Active Substance: LACTULOSE
  7. LANTUS [Concomitant]
     Active Substance: INSULIN GLARGINE
  8. CABOMETYX [Suspect]
     Active Substance: CABOZANTINIB S-MALATE
     Dosage: 60 MG, QOD
     Route: 048
     Dates: end: 20170417
  9. PROTONIX [Concomitant]
     Active Substance: PANTOPRAZOLE SODIUM
  10. CABOMETYX [Suspect]
     Active Substance: CABOZANTINIB S-MALATE
     Indication: RENAL CANCER
     Dosage: 60 MG, QD
     Route: 048
     Dates: start: 20170105
  11. ZOFRAN [Concomitant]
     Active Substance: ONDANSETRON HYDROCHLORIDE
  12. LOVENOX [Concomitant]
     Active Substance: ENOXAPARIN SODIUM
  13. DEXAMETHASONE. [Concomitant]
     Active Substance: DEXAMETHASONE

REACTIONS (8)
  - Nausea [Unknown]
  - Thrombosis [Unknown]
  - Central nervous system lesion [Unknown]
  - Pulmonary embolism [Unknown]
  - Renal mass [Unknown]
  - Vomiting [Unknown]
  - Pneumonia bacterial [Not Recovered/Not Resolved]
  - Pulmonary mass [Unknown]

NARRATIVE: CASE EVENT DATE: 20170505
